FAERS Safety Report 23554397 (Version 7)
Quarter: 2024Q4

REPORT INFORMATION
  Report Type: Spontaneous
  Country: US (occurrence: US)
  Receive Date: 20240222
  Receipt Date: 20241218
  Transmission Date: 20250114
  Serious: No
  Sender: PFIZER
  Company Number: US-PFIZER INC-202400043951

PATIENT
  Age: 93 Year
  Sex: Female
  Weight: 72.57 kg

DRUGS (4)
  1. IBRANCE [Suspect]
     Active Substance: PALBOCICLIB
     Indication: Breast cancer metastatic
     Dosage: 125 MG, CYCLIC FOR 21 DAYS, OFF FOR 7, ONCE A DAY
     Dates: start: 20231101
  2. IBRANCE [Suspect]
     Active Substance: PALBOCICLIB
     Indication: Malignant nipple neoplasm female
     Dosage: 100 MG, CYCLIC FOR 21 DAYS, OFF FOR 7 DAYS
     Dates: start: 20240320
  3. IBRANCE [Suspect]
     Active Substance: PALBOCICLIB
     Dosage: 75 MG, CYCLIC FOR 21 DAYS, OFF FOR 7 DAYS
     Route: 048
     Dates: start: 20240428
  4. ANASTROZOLE [Concomitant]
     Active Substance: ANASTROZOLE
     Dosage: UNK
     Dates: start: 2019

REACTIONS (5)
  - Limb mass [Not Recovered/Not Resolved]
  - Dyspnoea [Not Recovered/Not Resolved]
  - Full blood count decreased [Unknown]
  - Fatigue [Not Recovered/Not Resolved]
  - Asthenia [Not Recovered/Not Resolved]

NARRATIVE: CASE EVENT DATE: 20240101
